FAERS Safety Report 7216854-X (Version None)
Quarter: 2011Q1

REPORT INFORMATION
  Report Type: 
  Country: None (occurrence: None)
  Receive Date: 20110104
  Receipt Date: 20110104
  Transmission Date: 20110831
  Serious: No
  Sender: FDA-Public Use
  Company Number: None

PATIENT
  Age: 48 Year
  Sex: Female
  Weight: 56.6996 kg

DRUGS (1)
  1. CIPROFLOXACIN [Suspect]
     Indication: URINARY TRACT INFECTION
     Dosage: PO
     Route: 048
     Dates: start: 20071002, end: 20071007

REACTIONS (11)
  - ENDODONTIC PROCEDURE [None]
  - POOR QUALITY SLEEP [None]
  - MUSCULOSKELETAL PAIN [None]
  - TENDONITIS [None]
  - JOINT RANGE OF MOTION DECREASED [None]
  - FATIGUE [None]
  - ABNORMAL DREAMS [None]
  - MOOD ALTERED [None]
  - ARTIFICIAL CROWN PROCEDURE [None]
  - ACTIVITIES OF DAILY LIVING IMPAIRED [None]
  - ARTHRALGIA [None]
